FAERS Safety Report 13186956 (Version 1)
Quarter: 2017Q1

REPORT INFORMATION
  Report Type: Spontaneous
  Country: BE (occurrence: BE)
  Receive Date: 20170206
  Receipt Date: 20170206
  Transmission Date: 20170428
  Serious: Yes (Hospitalization, Other)
  Sender: FDA-Public Use
  Company Number: BE-ABBVIE-17K-013-1861285-00

PATIENT
  Sex: Male

DRUGS (1)
  1. HUMIRA [Suspect]
     Active Substance: ADALIMUMAB
     Indication: OSTEOARTHRITIS
     Route: 058

REACTIONS (10)
  - Tubulointerstitial nephritis [Unknown]
  - Myalgia [Unknown]
  - Lupus nephritis [Unknown]
  - Glomerulonephritis rapidly progressive [Unknown]
  - Renal failure [Unknown]
  - Lymph node tuberculosis [Unknown]
  - Enteritis [Unknown]
  - Abdominal pain [Unknown]
  - Systemic lupus erythematosus [Unknown]
  - Arthritis [Unknown]

NARRATIVE: CASE EVENT DATE: 201308
